FAERS Safety Report 24727554 (Version 1)
Quarter: 2024Q4

REPORT INFORMATION
  Report Type: Spontaneous
  Country: CN (occurrence: CN)
  Receive Date: 20241212
  Receipt Date: 20241212
  Transmission Date: 20250115
  Serious: Yes (Other)
  Sender: PFIZER
  Company Number: CN-PFIZER INC-PV202400157962

PATIENT
  Age: 59 Year
  Sex: Male
  Weight: 43 kg

DRUGS (2)
  1. PACLITAXEL [Suspect]
     Active Substance: PACLITAXEL
     Indication: Oesophageal carcinoma
     Dosage: 150 MG, 1X/28DAYS
     Route: 041
     Dates: start: 20200314, end: 20200314
  2. SODIUM CHLORIDE [Concomitant]
     Active Substance: SODIUM CHLORIDE
     Indication: Chemotherapy
     Dosage: 100 ML, 1X/28DAYS
     Route: 041
     Dates: start: 20200314, end: 20200314

REACTIONS (6)
  - Hypersensitivity [Recovering/Resolving]
  - Chest discomfort [Recovering/Resolving]
  - Suffocation feeling [Recovering/Resolving]
  - Cyanosis [Recovering/Resolving]
  - Urinary incontinence [Recovering/Resolving]
  - Off label use [Unknown]

NARRATIVE: CASE EVENT DATE: 20200314
